FAERS Safety Report 5427744-7 (Version None)
Quarter: 2007Q3

REPORT INFORMATION
  Report Type: 
  Country: None (occurrence: None)
  Receive Date: 20070828
  Receipt Date: 20070816
  Transmission Date: 20080115
  Serious: Yes (Other)
  Sender: FDA-Public Use
  Company Number: CA-ELI_LILLY_AND_COMPANY-CA200708003743

PATIENT
  Sex: Female

DRUGS (3)
  1. HUMALOG [Suspect]
     Indication: DIABETES MELLITUS
     Dosage: UNK U, AS NEEDED
     Route: 058
  2. GABAPENTIN [Concomitant]
     Indication: EYE PAIN
     Dosage: 300 MG, DAILY (1/D)
     Route: 048
     Dates: start: 20060101
  3. NORTRIPTYLINE HCL [Concomitant]
     Indication: DEPRESSION
     Dosage: 50 MG, EACH EVENING
     Route: 048
     Dates: start: 20070801

REACTIONS (5)
  - BLOOD GLUCOSE INCREASED [None]
  - CEREBROVASCULAR ACCIDENT [None]
  - DYSGEUSIA [None]
  - PAROSMIA [None]
  - SKIN ODOUR ABNORMAL [None]
